FAERS Safety Report 14073076 (Version 1)
Quarter: 2017Q4

REPORT INFORMATION
  Report Type: Spontaneous
  Country: US (occurrence: US)
  Receive Date: 20171010
  Receipt Date: 20171010
  Transmission Date: 20180321
  Serious: No
  Sender: FDA-Public Use
  Company Number: US-JNJFOC-20170719198

PATIENT
  Age: 71 Year
  Sex: Male
  Weight: 83.01 kg

DRUGS (4)
  1. LOSARTIN [Concomitant]
     Active Substance: LOSARTAN
     Indication: HYPERTENSION
     Route: 065
  2. ASPIRIN. [Concomitant]
     Active Substance: ASPIRIN
     Indication: ANTICOAGULANT THERAPY
     Route: 065
  3. TYLENOL EXTRA STRENGTH [Suspect]
     Active Substance: ACETAMINOPHEN
     Indication: SCIATICA
     Route: 048
     Dates: start: 20170724
  4. PLAVIX [Concomitant]
     Active Substance: CLOPIDOGREL BISULFATE
     Indication: ANTICOAGULANT THERAPY
     Route: 065

REACTIONS (3)
  - Product quality issue [Unknown]
  - Fatigue [Recovered/Resolved]
  - Product label issue [Unknown]

NARRATIVE: CASE EVENT DATE: 20170724
